FAERS Safety Report 10060297 (Version 5)
Quarter: 2015Q3

REPORT INFORMATION
  Report Type: Spontaneous
  Country: US (occurrence: US)
  Receive Date: 20140404
  Receipt Date: 20150914
  Transmission Date: 20151125
  Serious: Yes (Death, Hospitalization, Other)
  Sender: FDA-Public Use
  Company Number: US-MERCK-1404USA002406

PATIENT
  Sex: Male
  Weight: 104.31 kg

DRUGS (1)
  1. JANUMET [Suspect]
     Active Substance: METFORMIN HYDROCHLORIDE\SITAGLIPTIN PHOSPHATE
     Indication: TYPE 2 DIABETES MELLITUS
     Dosage: 50-1,000MG, BID
     Route: 048
     Dates: start: 20090706, end: 20131118

REACTIONS (49)
  - Cholelithiasis [Unknown]
  - Malignant ascites [Unknown]
  - Gastrooesophageal reflux disease [Unknown]
  - Hepatic steatosis [Unknown]
  - Intestinal adhesion lysis [Unknown]
  - Impaired gastric emptying [Unknown]
  - Stent placement [Unknown]
  - Clostridium difficile infection [Unknown]
  - Abdominal distension [Unknown]
  - Duodenal stenosis [Unknown]
  - Duodenitis [Unknown]
  - Calculus bladder [Unknown]
  - Vascular graft [Unknown]
  - Histoplasmosis [Unknown]
  - Cellulitis [Unknown]
  - Drug ineffective [Unknown]
  - Death [Fatal]
  - Gastroenterostomy [Unknown]
  - Cholangitis [Unknown]
  - Cholecystectomy [Unknown]
  - Hepatectomy [Unknown]
  - Emotional distress [Unknown]
  - Histoplasmosis [Unknown]
  - Neoadjuvant therapy [Unknown]
  - Catheterisation cardiac [Unknown]
  - Hypomagnesaemia [Unknown]
  - Hiccups [Unknown]
  - Pleural effusion [Unknown]
  - Benign prostatic hyperplasia [Unknown]
  - Dyspepsia [Unknown]
  - Asthenia [Unknown]
  - Abdominal pain [Unknown]
  - Ductal adenocarcinoma of pancreas [Recovered/Resolved]
  - Gastrointestinal obstruction [Unknown]
  - Surgery [Unknown]
  - Device occlusion [Unknown]
  - Sepsis [Unknown]
  - Hernia repair [Unknown]
  - Ulcer [Unknown]
  - Arteriosclerosis [Unknown]
  - Lower limb fracture [Unknown]
  - Limb operation [Unknown]
  - Pancreaticoduodenectomy [Unknown]
  - Pancreatitis chronic [Not Recovered/Not Resolved]
  - Gastric dilatation [Unknown]
  - Urinary retention [Unknown]
  - Post procedural bile leak [Unknown]
  - Peritonitis [Unknown]
  - Incisional hernia repair [Unknown]

NARRATIVE: CASE EVENT DATE: 2009
